FAERS Safety Report 23595960 (Version 1)
Quarter: 2024Q1

REPORT INFORMATION
  Report Type: Spontaneous
  Country: US (occurrence: None)
  Receive Date: 20240304
  Receipt Date: 20240304
  Transmission Date: 20240410
  Serious: Yes (Life-Threatening, Hospitalization, Disabling)
  Sender: FDA-Public Use
  Company Number: None

PATIENT
  Age: 76 Year
  Sex: Female
  Weight: 77.11 kg

DRUGS (15)
  1. LISINOPRIL [Suspect]
     Active Substance: LISINOPRIL
     Indication: Hypertension
     Dosage: FREQUENCY : DAILY;?
     Route: 048
     Dates: start: 2010, end: 20221024
  2. AMLODIPINE [Concomitant]
     Active Substance: AMLODIPINE BESYLATE
  3. HYDROCHLOROCHIAZIDE [Concomitant]
  4. METFORMIN [Concomitant]
     Active Substance: METFORMIN HYDROCHLORIDE
  5. BLOOD PRESSURE MONITOR [Concomitant]
  6. GLUCOSE MONITOR [Concomitant]
  7. VITAMIN C [Concomitant]
     Active Substance: ASCORBIC ACID
  8. VITAMIN D3 [Concomitant]
     Active Substance: CHOLECALCIFEROL
  9. COD LIVER OIL [Concomitant]
     Active Substance: COD LIVER OIL
  10. OMEGA 3 [Concomitant]
     Active Substance: CAPSAICIN
  11. HERBALS\HOMEOPATHICS\GOLDENSEAL [Concomitant]
     Active Substance: HERBALS\HOMEOPATHICS\GOLDENSEAL
  12. ECHINACEA [Concomitant]
     Active Substance: ECHINACEA, UNSPECIFIED
  13. ZINC [Concomitant]
     Active Substance: PYRITHIONE ZINC\ZINC\ZINC CHLORIDE
  14. COPPER [Concomitant]
     Active Substance: COPPER
  15. AZADIRACHTA INDICA BARK [Concomitant]
     Active Substance: AZADIRACHTA INDICA BARK

REACTIONS (14)
  - Angioedema [None]
  - Respiratory arrest [None]
  - Coma [None]
  - Paranoia [None]
  - Blood glucose increased [None]
  - Balance disorder [None]
  - Loss of personal independence in daily activities [None]
  - Product use complaint [None]
  - Dysstasia [None]
  - Pain [None]
  - Posture abnormal [None]
  - Dysphagia [None]
  - Gait disturbance [None]
  - Anxiety [None]

NARRATIVE: CASE EVENT DATE: 20221024
